FAERS Safety Report 9387136 (Version 1)
Quarter: 2013Q3

REPORT INFORMATION
  Report Type: Report from Study
  Country: US (occurrence: US)
  Receive Date: 20130708
  Receipt Date: 20130708
  Transmission Date: 20140515
  Serious: Yes (Other)
  Sender: FDA-Public Use
  Company Number: US-ABBOTT-13P-163-1112852-00

PATIENT
  Sex: Male

DRUGS (1)
  1. CREON [Suspect]
     Indication: CYSTIC FIBROSIS
     Dosage: 4-7 CAPS WITH MEALS, 1-3 CAPS WITH SNACKS
     Route: 048
     Dates: start: 199301

REACTIONS (1)
  - Respiratory tract infection [Not Recovered/Not Resolved]
